FAERS Safety Report 4532076-5 (Version None)
Quarter: 2004Q4

REPORT INFORMATION
  Report Type: 
  Country: None (occurrence: None)
  Receive Date: 20041217
  Receipt Date: 20041203
  Transmission Date: 20050328
  Serious: Yes (Other)
  Sender: FDA-Public Use
  Company Number: S04-UKI-08105-01

PATIENT
  Age: 55 Year
  Sex: Male

DRUGS (4)
  1. CIPRALEX (ESCITALOPRAM) [Suspect]
     Indication: DEPRESSION
     Dosage: 5 MG QD PO
     Route: 048
     Dates: start: 20040624, end: 20040101
  2. CIPRALEX (ESCITALOPRAM) [Suspect]
     Indication: DEPRESSION
     Dosage: 10 MG QOD PO
     Route: 048
     Dates: start: 20030101, end: 20041101
  3. PENICILLIN V ^ALIUD PHARMA^ (PHENOXYMETHYLPENICILLIN POTASSIUM) [Concomitant]
  4. DICLOFENAC SODIUM [Concomitant]

REACTIONS (2)
  - DRUG WITHDRAWAL SYNDROME [None]
  - NEPHROTIC SYNDROME [None]
